FAERS Safety Report 13470515 (Version 3)
Quarter: 2017Q4

REPORT INFORMATION
  Report Type: Spontaneous
  Country: US (occurrence: US)
  Receive Date: 20170424
  Receipt Date: 20171103
  Transmission Date: 20180320
  Serious: Yes (Other)
  Sender: FDA-Public Use
  Company Number: US-TEVA-759365ACC

PATIENT
  Age: 53 Year
  Sex: Female

DRUGS (8)
  1. GABAPENTIN. [Concomitant]
     Active Substance: GABAPENTIN
  2. BENZONATATE. [Concomitant]
     Active Substance: BENZONATATE
  3. VENTOLIN HFA AER [Concomitant]
  4. COPAXONE [Suspect]
     Active Substance: GLATIRAMER ACETATE
     Indication: MULTIPLE SCLEROSIS
     Dosage: PREFILLED SYRINGE
     Route: 058
     Dates: start: 20151224
  5. SUMATRIPTAN. [Concomitant]
     Active Substance: SUMATRIPTAN
  6. OXYBUTYNIN 10 MG ER [Concomitant]
  7. AMANTADINE. [Concomitant]
     Active Substance: AMANTADINE HYDROCHLORIDE
  8. LEVOFLOXACIN SOLUTION [Concomitant]

REACTIONS (6)
  - Optic neuritis [Unknown]
  - Ligament sprain [Not Recovered/Not Resolved]
  - Injection site reaction [Unknown]
  - Fall [Unknown]
  - Fatigue [Unknown]
  - Injection site pruritus [Unknown]

NARRATIVE: CASE EVENT DATE: 201703
